FAERS Safety Report 5988279-6 (Version None)
Quarter: 2008Q4

REPORT INFORMATION
  Report Type: 
  Country: None (occurrence: None)
  Receive Date: 20081210
  Receipt Date: 20081202
  Transmission Date: 20090506
  Serious: Yes (Death)
  Sender: FDA-Public Use
  Company Number: GR-PFIZER INC-2008101519

PATIENT

DRUGS (1)
  1. MARAVIROC [Suspect]
     Indication: HIV INFECTION

REACTIONS (1)
  - GASTRIC CANCER [None]
